FAERS Safety Report 16242248 (Version 1)
Quarter: 2019Q2

REPORT INFORMATION
  Report Type: Spontaneous
  Country: CA (occurrence: CA)
  Receive Date: 20190426
  Receipt Date: 20190426
  Transmission Date: 20190711
  Serious: Yes (Other)
  Sender: FDA-Public Use
  Company Number: CA-TEVA-2019-CA-1042415

PATIENT
  Age: 69 Year
  Sex: Female
  Weight: 80 kg

DRUGS (16)
  1. AMLODIPINE BESILATE [Suspect]
     Active Substance: AMLODIPINE BESYLATE
     Indication: PRODUCT USED FOR UNKNOWN INDICATION
     Dosage: 10 MILLIGRAM DAILY;
     Route: 065
  2. ALLOPURINOL. [Concomitant]
     Active Substance: ALLOPURINOL
  3. METOPROLOL. [Concomitant]
     Active Substance: METOPROLOL
  4. INFLIXIMAB [Suspect]
     Active Substance: INFLIXIMAB
     Indication: COLITIS ULCERATIVE
     Route: 042
  5. ASA [Concomitant]
     Active Substance: ASPIRIN
  6. ASACOL [Concomitant]
     Active Substance: MESALAMINE
  7. CITALOPRAM [Concomitant]
     Active Substance: CITALOPRAM HYDROBROMIDE
  8. ECHINACEA [Concomitant]
     Active Substance: ECHINACEA, UNSPECIFIED
  9. POTASSIUM CHLORIDE. [Concomitant]
     Active Substance: POTASSIUM CHLORIDE
  10. RANITIDINE. [Concomitant]
     Active Substance: RANITIDINE
  11. SIMVASTATIN. [Concomitant]
     Active Substance: SIMVASTATIN
  12. PALAFER [Concomitant]
     Active Substance: FERROUS FUMARATE
  13. DIAMICRON [Concomitant]
     Active Substance: GLICLAZIDE
  14. JANUVIA [Concomitant]
     Active Substance: SITAGLIPTIN PHOSPHATE
  15. MEZAVANT ALSO KNOWNAS MESALAMINE [Concomitant]
     Dosage: TABLET (DELAYED AND EXTENDED RELEASE).
  16. VITAMIN C [Concomitant]
     Active Substance: ASCORBIC ACID

REACTIONS (1)
  - Infusion site thrombosis [Unknown]
